FAERS Safety Report 4965164-X (Version None)
Quarter: 2006Q2

REPORT INFORMATION
  Report Type: 
  Country: None (occurrence: None)
  Receive Date: 20060406
  Receipt Date: 20060308
  Transmission Date: 20061013
  Serious: Yes (Disabling)
  Sender: FDA-Public Use
  Company Number: GB-BOEHRINGER INGELHEIM PHARMACEUTICALS, INC.-2006-BP-03859YA

PATIENT
  Sex: Male

DRUGS (1)
  1. OMNIC CAPSULES [Suspect]
     Indication: POLLAKIURIA
     Route: 065
     Dates: start: 20051201

REACTIONS (3)
  - DRUG INEFFECTIVE [None]
  - POLLAKIURIA [None]
  - URINE FLOW DECREASED [None]
